FAERS Safety Report 22522602 (Version 1)
Quarter: 2023Q2

REPORT INFORMATION
  Report Type: Spontaneous
  Country: IT (occurrence: IT)
  Receive Date: 20230605
  Receipt Date: 20230605
  Transmission Date: 20230721
  Serious: Yes (Other)
  Sender: FDA-Public Use
  Company Number: None

PATIENT
  Age: 57 Year
  Sex: Female
  Weight: 60 kg

DRUGS (1)
  1. KISQALI [Suspect]
     Active Substance: RIBOCICLIB
     Indication: Breast cancer
     Dosage: 600 MG, QD (600 MG PER SETTIMANE SEGUITE DA 1 DI PAUSA)
     Route: 048
     Dates: start: 20230428, end: 20230512

REACTIONS (1)
  - Long QT syndrome [Not Recovered/Not Resolved]

NARRATIVE: CASE EVENT DATE: 20230512
